FAERS Safety Report 20185319 (Version 1)
Quarter: 2021Q4

REPORT INFORMATION
  Report Type: Other
  Country: US (occurrence: US)
  Receive Date: 20211215
  Receipt Date: 20211215
  Transmission Date: 20220303
  Serious: No
  Sender: FDA-Public Use
  Company Number: US-CADILA HEALTHCARE LIMITED-US-ZYDUS-070926

PATIENT

DRUGS (6)
  1. DROXIDOPA [Suspect]
     Active Substance: DROXIDOPA
     Indication: Autonomic neuropathy
     Dosage: 300 MILLIGRAM, TID (DAYS 1-2)
     Route: 065
  2. DROXIDOPA [Suspect]
     Active Substance: DROXIDOPA
     Dosage: 600 MILLIGRAM, TID (DAYS 3-4)
     Route: 065
  3. DROXIDOPA [Suspect]
     Active Substance: DROXIDOPA
     Dosage: 900 MILLIGRAM, TID (DAYS 5-6)
     Route: 065
  4. DROXIDOPA [Suspect]
     Active Substance: DROXIDOPA
     Dosage: 1200 MILLIGRAM, TID (DAYS 7-8)
     Route: 065
  5. DROXIDOPA [Suspect]
     Active Substance: DROXIDOPA
     Dosage: 1500 MILLIGRAM, TID (DAYS 9-10)
     Route: 065
  6. DROXIDOPA [Suspect]
     Active Substance: DROXIDOPA
     Dosage: 1800 MILLIGRAM, TID
     Route: 065

REACTIONS (2)
  - Drug ineffective [Recovered/Resolved]
  - Condition aggravated [Unknown]
